FAERS Safety Report 16726102 (Version 3)
Quarter: 2020Q1

REPORT INFORMATION
  Report Type: Spontaneous
  Country: PT (occurrence: PT)
  Receive Date: 20190821
  Receipt Date: 20200205
  Transmission Date: 20200409
  Serious: Yes (Life-Threatening, Hospitalization, Other)
  Sender: FDA-Public Use
  Company Number: PT-JNJFOC-20190815859

PATIENT
  Age: 48 Year
  Sex: Female
  Weight: 77 kg

DRUGS (14)
  1. CHROMIUM PICOLINATE [Interacting]
     Active Substance: CHROMIUM PICOLINATE
     Indication: WEIGHT DECREASED
     Route: 048
     Dates: start: 201708, end: 201804
  2. METFORMIN [Interacting]
     Active Substance: METFORMIN HYDROCHLORIDE
     Indication: WEIGHT DECREASED
     Route: 048
  3. CENTELLA ASIATICA [Suspect]
     Active Substance: CENTELLA ASIATICA WHOLE
     Indication: WEIGHT DECREASED
     Route: 048
     Dates: start: 201708, end: 201804
  4. SENNA ALEXANDRINA [Suspect]
     Active Substance: SENNA LEAF
     Indication: PRODUCT USED FOR UNKNOWN INDICATION
     Route: 065
  5. TOPIRAMATE. [Suspect]
     Active Substance: TOPIRAMATE
     Indication: WEIGHT DECREASED
     Route: 048
     Dates: start: 201708, end: 201804
  6. FLECAINIDE [Concomitant]
     Active Substance: FLECAINIDE
     Indication: VENTRICULAR EXTRASYSTOLES
     Route: 048
     Dates: start: 201605
  7. PHENOLPHTHALEIN [Interacting]
     Active Substance: PHENOLPHTHALEIN
     Indication: WEIGHT DECREASED
     Route: 048
     Dates: start: 201708, end: 201804
  8. BUPROPION. [Interacting]
     Active Substance: BUPROPION
     Indication: WEIGHT DECREASED
     Route: 048
     Dates: start: 201708, end: 201804
  9. MINULET [Interacting]
     Active Substance: ETHINYL ESTRADIOL\GESTODENE
     Indication: CONTRACEPTION
     Route: 048
     Dates: start: 201711, end: 201804
  10. CHLORDIAZEPOXIDE. [Suspect]
     Active Substance: CHLORDIAZEPOXIDE
     Indication: WEIGHT DECREASED
     Route: 048
     Dates: start: 201708, end: 201804
  11. ORLISTAT. [Suspect]
     Active Substance: ORLISTAT
     Indication: WEIGHT DECREASED
     Route: 048
     Dates: start: 201708, end: 201804
  12. SENNOSIDE A+B [Suspect]
     Active Substance: SENNOSIDES A AND B
     Indication: WEIGHT CONTROL
     Route: 065
  13. CASCARA SAGRADA [Suspect]
     Active Substance: FRANGULA PURSHIANA BARK
     Indication: WEIGHT DECREASED
     Route: 048
     Dates: start: 201708, end: 201804
  14. FUROSEMIDE. [Interacting]
     Active Substance: FUROSEMIDE
     Indication: WEIGHT DECREASED
     Route: 048

REACTIONS (10)
  - Headache [Unknown]
  - Off label use [Unknown]
  - Intentional product misuse [Unknown]
  - Psychomotor retardation [Recovering/Resolving]
  - Cerebral venous thrombosis [Recovering/Resolving]
  - Thalamic infarction [Not Recovered/Not Resolved]
  - Product use in unapproved indication [Unknown]
  - Bradyphrenia [Recovering/Resolving]
  - Drug interaction [Unknown]
  - Fatigue [Recovering/Resolving]

NARRATIVE: CASE EVENT DATE: 201708
